FAERS Safety Report 12110530 (Version 1)
Quarter: 2016Q1

REPORT INFORMATION
  Report Type: Not Available
  Country: US (occurrence: US)
  Receive Date: 20160224
  Receipt Date: 20160224
  Transmission Date: 20160526
  Serious: Yes (Other)
  Sender: FDA-Public Use
  Company Number: US-ANIPHARMA-2016-US-000672

PATIENT
  Age: 63 Year
  Sex: Female

DRUGS (7)
  1. RITONAVIR. [Suspect]
     Active Substance: RITONAVIR
  2. EMTRICITABINE [Concomitant]
     Active Substance: EMTRICITABINE
  3. TENOVIR [Concomitant]
  4. AMLODIPINE [Concomitant]
     Active Substance: AMLODIPINE BESYLATE
  5. RISPERIDONE (NON-SPECIFIC) [Suspect]
     Active Substance: RISPERIDONE
     Dosage: 2 MG TWICE PER DAY
  6. ESCITALOPRAM [Concomitant]
     Active Substance: ESCITALOPRAM OXALATE
  7. DARUNAVIR [Concomitant]
     Active Substance: DARUNAVIR

REACTIONS (2)
  - Drug interaction [Unknown]
  - Angioedema [Unknown]
